FAERS Safety Report 20867594 (Version 1)
Quarter: 2022Q2

REPORT INFORMATION
  Report Type: Spontaneous
  Country: US (occurrence: US)
  Receive Date: 20220524
  Receipt Date: 20220524
  Transmission Date: 20220721
  Serious: No
  Sender: FDA-Public Use
  Company Number: US-PRINSTON PHARMACEUTICAL INC.-2022PRN00168

PATIENT
  Age: 89 Year
  Sex: Female
  Weight: 47.619 kg

DRUGS (15)
  1. DULOXETINE [Suspect]
     Active Substance: DULOXETINE
     Indication: Depression
     Dosage: 20 MG (1 CAPSULE), 1X/DAY AT NIGHT
     Route: 048
     Dates: start: 20220505
  2. DULOXETINE [Suspect]
     Active Substance: DULOXETINE
     Indication: Anxiety
  3. LEVOTHYROXINE [Concomitant]
     Active Substance: LEVOTHYROXINE
     Dosage: EVERY MORNING
  4. ZEBETA [Concomitant]
     Active Substance: BISOPROLOL FUMARATE
     Dosage: 2.5 (1/2 PILL) ONCE A DAY
  5. PHENOBARBITAL [Concomitant]
     Active Substance: PHENOBARBITAL
     Dosage: 64.8 MG (1 TABLET), 2X/DAY (THE MORNING AND AT NIGHT)
  6. PHENOBARBITAL [Concomitant]
     Active Substance: PHENOBARBITAL
     Dosage: 32.4 MG (1/2 TABLET), 1X/DAY AT DINNER
  7. ASPIRIN [Concomitant]
     Active Substance: ASPIRIN
     Dosage: 81 MG, 1X/DAY
  8. VITAMIN D3 [Concomitant]
     Active Substance: CHOLECALCIFEROL
     Dosage: 1000 IU, 1X/DAY
  9. FISH OIL [Concomitant]
     Active Substance: FISH OIL
     Dosage: 1000 MG, 3X/DAY
  10. MINERALS\VITAMINS [Concomitant]
     Active Substance: MINERALS\VITAMINS
  11. GAVISCON [Concomitant]
     Active Substance: ALUMINUM HYDROXIDE\MAGNESIUM CARBONATE
     Dosage: UNK, AS NEEDED
  12. PEPCID [Concomitant]
     Active Substance: FAMOTIDINE
     Dosage: UNK, AS NEEDED
  13. CALCIUM WITH D3 [Concomitant]
     Dosage: 600 MG
  14. SODIUM CHLORIDE [Concomitant]
     Active Substance: SODIUM CHLORIDE
     Dosage: 1 GRAM TWICE DAILY
     Dates: start: 202203
  15. UNSPECIFIED ALLERGY PILLS [Concomitant]
     Dosage: OCCASIONAL USE

REACTIONS (5)
  - Bladder spasm [Recovered/Resolved]
  - Urine output decreased [Recovered/Resolved]
  - Catheter site extravasation [Not Recovered/Not Resolved]
  - Purple urine bag syndrome [Unknown]
  - Fatigue [Not Recovered/Not Resolved]

NARRATIVE: CASE EVENT DATE: 20220501
